FAERS Safety Report 23074001 (Version 1)
Quarter: 2023Q4

REPORT INFORMATION
  Report Type: Spontaneous
  Country: GB (occurrence: GB)
  Receive Date: 20231017
  Receipt Date: 20231017
  Transmission Date: 20240110
  Serious: Yes (Disabling)
  Sender: FDA-Public Use
  Company Number: GB-MHRA-MED-202310080921389980-TNHRK

PATIENT
  Age: 56 Year
  Sex: Female
  Weight: 65 kg

DRUGS (8)
  1. MIRENA [Suspect]
     Active Substance: LEVONORGESTREL
     Indication: Heavy menstrual bleeding
     Dosage: 20?G/DAY
     Route: 015
     Dates: start: 2011, end: 20230830
  2. CALCIUM CARBONATE\CHOLECALCIFEROL [Concomitant]
     Active Substance: CALCIUM CARBONATE\CHOLECALCIFEROL
     Indication: Intervertebral disc degeneration
     Dosage: UNK
     Dates: start: 2017
  3. DUORESP SPIROMAX [BUDESONIDE;FORMOTEROL FUMARATE DIHYDRATE] [Concomitant]
     Indication: Asthma
     Dosage: UNK
     Route: 055
     Dates: start: 2005
  4. FOLIC ACID [Concomitant]
     Active Substance: FOLIC ACID
     Indication: Anaemia
     Dosage: UNK
     Dates: start: 2021
  5. LEVOTHYROXINE [Concomitant]
     Active Substance: LEVOTHYROXINE
     Indication: Hypothyroidism
     Dosage: UNK
     Dates: start: 2021
  6. METHOTREXATE [Concomitant]
     Active Substance: METHOTREXATE
     Indication: Rheumatoid arthritis
     Dosage: UNK
     Dates: end: 202207
  7. PANTOPRAZOLE [Concomitant]
     Active Substance: PANTOPRAZOLE
     Indication: Helicobacter infection
     Dosage: UNK
     Dates: start: 2009
  8. SULFASALAZINE [Concomitant]
     Active Substance: SULFASALAZINE
     Indication: Rheumatoid arthritis
     Dates: start: 201006

REACTIONS (3)
  - Arthralgia [Recovering/Resolving]
  - Joint swelling [Recovering/Resolving]
  - Discomfort [None]
